FAERS Safety Report 16248411 (Version 1)
Quarter: 2019Q2

REPORT INFORMATION
  Report Type: Spontaneous
  Country: US (occurrence: US)
  Receive Date: 20190429
  Receipt Date: 20190429
  Transmission Date: 20190711
  Serious: No
  Sender: FDA-Public Use
  Company Number: US-TEVA-2018-US-980545

PATIENT
  Age: 66 Year
  Sex: Female

DRUGS (3)
  1. TRASTUZUMAB. [Suspect]
     Active Substance: TRASTUZUMAB
     Indication: INVASIVE BREAST CARCINOMA
     Dosage: ACCIDENTAL INTRAPLEURAL ADMINISTRATION INSTEAD OF IV INFUSION
     Route: 034
  2. PERTUZUMAB. [Suspect]
     Active Substance: PERTUZUMAB
     Indication: INVASIVE BREAST CARCINOMA
     Dosage: ACCIDENTAL INTRAPLEURAL ADMINISTRATION INSTEAD OF IV INFUSION
     Route: 034
  3. DOCETAXEL. [Suspect]
     Active Substance: DOCETAXEL
     Indication: INVASIVE BREAST CARCINOMA
     Dosage: ACCIDENTAL INTRAPLEURAL ADMINISTRATION INSTEAD OF IV INFUSION
     Route: 034

REACTIONS (2)
  - Incorrect route of product administration [Unknown]
  - No adverse event [Unknown]
